FAERS Safety Report 24100937 (Version 1)
Quarter: 2024Q3

REPORT INFORMATION
  Report Type: Spontaneous
  Country: CN (occurrence: CN)
  Receive Date: 20240717
  Receipt Date: 20240717
  Transmission Date: 20241017
  Serious: Yes (Other)
  Sender: BEIGENE
  Company Number: CN-BEIGENE-BGN-2024-010773

PATIENT

DRUGS (2)
  1. TISLELIZUMAB [Suspect]
     Active Substance: TISLELIZUMAB
     Indication: Endometrial cancer
     Dosage: 200 MILLIGRAM, Q3WK
     Route: 041
     Dates: start: 202207
  2. CATEQUENTINIB [Suspect]
     Active Substance: CATEQUENTINIB
     Indication: Endometrial cancer
     Dosage: TAKE IT FOR 2 WEEKS, STOP TAKING IT FOR 1 WEEK
     Route: 048
     Dates: start: 202207

REACTIONS (3)
  - Immune-mediated nephritis [Recovering/Resolving]
  - Ureteritis [Recovering/Resolving]
  - Cystitis [Recovering/Resolving]

NARRATIVE: CASE EVENT DATE: 20231120
